FAERS Safety Report 9851386 (Version 2)
Quarter: 2015Q1

REPORT INFORMATION
  Report Type: Report from Study
  Country: JP (occurrence: JP)
  Receive Date: 20140129
  Receipt Date: 20150112
  Transmission Date: 20150721
  Serious: Yes (Death, Other)
  Sender: FDA-Public Use
  Company Number: JP-ROCHE-1337175

PATIENT
  Age: 83 Year
  Sex: Male
  Weight: 53 kg

DRUGS (10)
  1. AMLODIN [Concomitant]
     Active Substance: AMLODIPINE BESYLATE
     Route: 048
  2. LIPITOR [Concomitant]
     Active Substance: ATORVASTATIN CALCIUM
     Route: 048
  3. METHOXY POLYETHYLENE GLYCOL-EPOETIN BETA [Suspect]
     Active Substance: PEGZEREPOETIN ALFA
     Indication: NEPHROGENIC ANAEMIA
     Route: 042
     Dates: start: 20120912, end: 20130512
  4. KREMEZIN [Concomitant]
     Active Substance: ACTIVATED CHARCOAL
     Indication: GLOMERULONEPHRITIS CHRONIC
     Route: 048
     Dates: start: 20120702, end: 20121231
  5. ALLOPURINOL. [Concomitant]
     Active Substance: ALLOPURINOL
     Dosage: REPORTED AS ZYLORIC
     Route: 048
  6. ARTIST [Concomitant]
     Active Substance: CARVEDILOL
     Route: 048
  7. NESINA [Concomitant]
     Active Substance: ALOGLIPTIN BENZOATE
     Indication: GLOMERULONEPHRITIS CHRONIC
     Route: 048
     Dates: start: 20120906, end: 20130114
  8. LASIX [Concomitant]
     Active Substance: FUROSEMIDE
     Indication: GLOMERULONEPHRITIS CHRONIC
     Route: 048
     Dates: end: 201212
  9. FLUITRAN [Concomitant]
     Active Substance: TRICHLORMETHIAZIDE
     Indication: GLOMERULONEPHRITIS CHRONIC
     Route: 048
     Dates: end: 201212
  10. PREDONINE [Concomitant]
     Active Substance: PREDNISOLONE\PREDNISOLONE ACETATE\PREDNISOLONE SODIUM SUCCINATE
     Indication: GLOMERULONEPHRITIS CHRONIC
     Route: 048
     Dates: start: 20120702, end: 20121231

REACTIONS (3)
  - Bacteraemia [Fatal]
  - Respiratory tract infection [Unknown]
  - Sepsis [Fatal]

NARRATIVE: CASE EVENT DATE: 20130309
